FAERS Safety Report 19003506 (Version 1)
Quarter: 2021Q1

REPORT INFORMATION
  Report Type: Report from Study
  Country: JP (occurrence: JP)
  Receive Date: 20210312
  Receipt Date: 20210312
  Transmission Date: 20210420
  Serious: Yes (Hospitalization, Other)
  Sender: FDA-Public Use
  Company Number: JP-AUROBINDO-AUR-APL-2019-049499

PATIENT
  Age: 74 Year
  Sex: Male
  Weight: 63.4 kg

DRUGS (30)
  1. BONALON [Concomitant]
     Active Substance: ALENDRONATE SODIUM
     Dosage: 5 MILLIGRAM, ONCE A DAY
     Route: 048
     Dates: start: 20090707, end: 20090918
  2. BAKTAR [Concomitant]
     Active Substance: SULFAMETHOXAZOLE\TRIMETHOPRIM
     Indication: ANTIBIOTIC PROPHYLAXIS
     Dosage: 2 DOSAGE FORM
     Route: 048
     Dates: start: 20090714, end: 20090918
  3. RITUXAN [Suspect]
     Active Substance: RITUXIMAB
     Indication: FOLLICLE CENTRE LYMPHOMA, FOLLICULAR GRADE I, II, III STAGE II
     Dosage: 250 MILLIGRAM/SQ. METER, SINGLE
     Route: 041
     Dates: start: 20090520, end: 20090520
  4. RITUXAN [Suspect]
     Active Substance: RITUXIMAB
     Dosage: 250 MILLIGRAM/SQ. METER, SINGLE
     Route: 041
     Dates: start: 20090527
  5. LOXONIN [Concomitant]
     Active Substance: LOXOPROFEN SODIUM
     Dosage: 60 MILLIGRAM
     Route: 048
     Dates: start: 20090623, end: 20090712
  6. BONALON [Concomitant]
     Active Substance: ALENDRONATE SODIUM
     Indication: OSTEOPOROSIS PROPHYLAXIS
     Dosage: 5 MILLIGRAM
     Route: 048
     Dates: start: 20090519, end: 20090528
  7. BONALON [Concomitant]
     Active Substance: ALENDRONATE SODIUM
     Dosage: 5 MILLIGRAM
     Route: 048
     Dates: start: 20090630, end: 20090701
  8. GLIMICRON [Concomitant]
     Active Substance: GLICLAZIDE
     Indication: PROPHYLAXIS
     Dosage: 80 MILLIGRAM, ONCE A DAY
     Route: 048
     Dates: start: 20090729, end: 20090918
  9. AMARYL [Concomitant]
     Active Substance: GLIMEPIRIDE
     Indication: PROPHYLAXIS
     Dosage: 0.5 MILLIGRAM, ONCE A DAY
     Route: 048
     Dates: start: 20090519, end: 20090601
  10. PREDONINE [Concomitant]
     Active Substance: PREDNISOLONE
     Indication: PROPHYLAXIS
     Dosage: 10 MILLIGRAM, DAILY
     Route: 048
     Dates: start: 20090630, end: 20090713
  11. NEO?MINOPHAGEN C [Concomitant]
     Active Substance: AMMONIUM GLYCYRRHIZATE
     Indication: PRODUCT USED FOR UNKNOWN INDICATION
     Dosage: 20 MILLILITER
     Route: 041
     Dates: start: 20090520, end: 20090520
  12. ZEVALIN [Suspect]
     Active Substance: IBRITUMOMAB TIUXETAN
     Dosage: 938 MEGABECQUEREL, ONCE A DAY
     Route: 042
     Dates: start: 20090527, end: 20090527
  13. ROCEPHIN [Suspect]
     Active Substance: CEFTRIAXONE SODIUM
     Dosage: 2 G, QD
     Route: 041
     Dates: start: 20090623, end: 20090623
  14. ADONA [Concomitant]
     Indication: HAEMORRHAGE PROPHYLAXIS
     Dosage: 90 MILLIGRAM, ONCE A DAY
     Route: 048
     Dates: start: 20090630, end: 20090918
  15. ZEVALIN [Suspect]
     Active Substance: IBRITUMOMAB TIUXETAN
     Indication: FOLLICLE CENTRE LYMPHOMA, FOLLICULAR GRADE I, II, III STAGE II
     Dosage: 130 MEGABECQUEREL
     Route: 042
     Dates: start: 20090520, end: 20090520
  16. ROCEPHIN [Suspect]
     Active Substance: CEFTRIAXONE SODIUM
     Indication: PYREXIA
     Dosage: 2 G, QD
     Route: 041
     Dates: start: 20090616, end: 20090616
  17. LOXONIN [Concomitant]
     Active Substance: LOXOPROFEN SODIUM
     Dosage: 60 MILLIGRAM, ONCE A DAY
     Route: 048
     Dates: start: 20090527, end: 20090527
  18. SOLU?CORTEF [Concomitant]
     Active Substance: HYDROCORTISONE SODIUM SUCCINATE
     Indication: PROPHYLAXIS
     Dosage: 200 MILLIGRAM
     Route: 041
     Dates: start: 20090520, end: 20090520
  19. SOLU?CORTEF [Concomitant]
     Active Substance: HYDROCORTISONE SODIUM SUCCINATE
     Dosage: 200 MILLIGRAM
     Route: 041
     Dates: start: 20090527, end: 20090527
  20. PREDONINE [Concomitant]
     Active Substance: PREDNISOLONE
     Dosage: 5 MILLIGRAM, DAILY
     Route: 048
     Dates: start: 20090714, end: 20090918
  21. BONALON [Concomitant]
     Active Substance: ALENDRONATE SODIUM
     Dosage: 5 MILLIGRAM
     Route: 048
     Dates: start: 20090602, end: 20090623
  22. CYTOTEC [Concomitant]
     Active Substance: MISOPROSTOL
     Indication: PROPHYLAXIS AGAINST GASTROINTESTINAL ULCER
     Dosage: 200 MICROGRAM, ONCE A DAY
     Route: 048
     Dates: start: 20090520, end: 20090520
  23. NEO?MINOPHAGEN C [Concomitant]
     Active Substance: AMMONIUM GLYCYRRHIZATE
     Dosage: 20 MILLILITER, ONCE A DAY
     Route: 041
     Dates: start: 20090527, end: 20090527
  24. BONALON [Concomitant]
     Active Substance: ALENDRONATE SODIUM
     Dosage: 10 MILLIGRAM
     Route: 048
     Dates: start: 20090529, end: 20090601
  25. RESTAMIN [Concomitant]
     Active Substance: DIPHENHYDRAMINE
     Indication: PROPHYLAXIS
     Dosage: 30 MILLIGRAM, DAILY
     Route: 048
     Dates: start: 20090520, end: 20090520
  26. RESTAMIN [Concomitant]
     Active Substance: DIPHENHYDRAMINE
     Dosage: 30 MILLIGRAM
     Route: 048
     Dates: start: 20090527, end: 20090527
  27. ZITHROMAC [Suspect]
     Active Substance: AZITHROMYCIN DIHYDRATE
     Indication: PRODUCT USED FOR UNKNOWN INDICATION
     Dosage: 2 GRAM, ONCE A DAY
     Route: 048
     Dates: start: 20090616
  28. LOXONIN [Concomitant]
     Active Substance: LOXOPROFEN SODIUM
     Indication: PROPHYLAXIS
     Dosage: 60 MILLIGRAM, ONCE A DAY
     Route: 048
     Dates: start: 20090520, end: 20090520
  29. CYTOTEC [Concomitant]
     Active Substance: MISOPROSTOL
     Dosage: 200 MICROGRAM, ONCE A DAY
     Route: 048
     Dates: start: 20090527, end: 20090527
  30. VICCLOX [Concomitant]
     Active Substance: ACYCLOVIR SODIUM
     Indication: ANTIVIRAL PROPHYLAXIS
     Dosage: 200 MILLIGRAM, ONCE A DAY
     Route: 048
     Dates: start: 20090714, end: 20090918

REACTIONS (5)
  - Pyrexia [Recovered/Resolved]
  - White blood cell count decreased [Recovered/Resolved]
  - Hepatic function abnormal [Recovered/Resolved]
  - Thrombocytopenia [Recovered/Resolved]
  - Pneumonia [Recovered/Resolved]

NARRATIVE: CASE EVENT DATE: 20090606
